FAERS Safety Report 9898727 (Version 1)
Quarter: 2014Q1

REPORT INFORMATION
  Report Type: Spontaneous
  Country: RU (occurrence: RU)
  Receive Date: 20140214
  Receipt Date: 20140214
  Transmission Date: 20141002
  Serious: Yes (Hospitalization)
  Sender: FDA-Public Use
  Company Number: RU-TEVA-460042ISR

PATIENT
  Age: 42 Year
  Sex: Female
  Weight: 61 kg

DRUGS (1)
  1. LINEZOLID-TEVA [Suspect]
     Indication: PNEUMONIA
     Route: 042

REACTIONS (3)
  - Hypotension [Recovered/Resolved]
  - Asthenia [Recovered/Resolved]
  - Dizziness [Recovered/Resolved]
